FAERS Safety Report 24057091 (Version 1)
Quarter: 2024Q3

REPORT INFORMATION
  Report Type: Spontaneous
  Country: US (occurrence: US)
  Receive Date: 20240706
  Receipt Date: 20240706
  Transmission Date: 20241017
  Serious: No
  Sender: SANOFI AVENTIS
  Company Number: US-SANOFI-02121003

PATIENT
  Age: 33 Year
  Sex: Male

DRUGS (1)
  1. LANTUS SOLOSTAR [Suspect]
     Active Substance: INSULIN GLARGINE
     Indication: Type 1 diabetes mellitus
     Dosage: 37 UNITS IN THE MORNING AND 25 UNITS IN THE EVENING, BID
     Dates: start: 1996

REACTIONS (1)
  - Off label use [Unknown]

NARRATIVE: CASE EVENT DATE: 19960101
